FAERS Safety Report 7726140-7 (Version None)
Quarter: 2011Q3

REPORT INFORMATION
  Report Type: 
  Country: None (occurrence: None)
  Receive Date: 20110902
  Receipt Date: 20110823
  Transmission Date: 20111222
  Serious: Yes (Hospitalization)
  Sender: FDA-Public Use
  Company Number: US-UCBSA-026331

PATIENT
  Sex: Male
  Weight: 46.26 kg

DRUGS (11)
  1. CIMZIA [Suspect]
     Route: 058
     Dates: start: 20100323, end: 20100824
  2. CIMZIA [Suspect]
     Indication: CROHN'S DISEASE
     Route: 058
     Dates: start: 20100122
  3. LOPERAMIDE HCL [Concomitant]
     Dosage: AS NEEDED
  4. ENOXAPARIN [Concomitant]
  5. UNASYN [Concomitant]
  6. PREDNISONE [Concomitant]
     Dates: start: 20020901, end: 20040401
  7. CIMZIA [Suspect]
     Route: 058
     Dates: start: 20100205, end: 20100219
  8. PREDNISONE [Concomitant]
     Dates: start: 20020701, end: 20020901
  9. PREDNISONE [Concomitant]
     Dates: start: 20100420
  10. IBUPROFEN [Concomitant]
  11. PREDNISONE [Concomitant]
     Dates: start: 20090601, end: 20090811

REACTIONS (13)
  - C-REACTIVE PROTEIN INCREASED [None]
  - RED CELL DISTRIBUTION WIDTH INCREASED [None]
  - CELLULITIS [None]
  - ARTHRALGIA [None]
  - BLOOD POTASSIUM DECREASED [None]
  - MEAN CELL HAEMOGLOBIN CONCENTRATION DECREASED [None]
  - RED BLOOD CELL SEDIMENTATION RATE INCREASED [None]
  - HAEMOGLOBIN DECREASED [None]
  - HAEMATOCRIT DECREASED [None]
  - LYMPHOCYTE PERCENTAGE DECREASED [None]
  - BLOOD SODIUM DECREASED [None]
  - MEAN CELL VOLUME DECREASED [None]
  - INJURY [None]
